FAERS Safety Report 7783934-X (Version None)
Quarter: 2011Q3

REPORT INFORMATION
  Report Type: 
  Country: None (occurrence: None)
  Receive Date: 20110928
  Receipt Date: 20110921
  Transmission Date: 20111222
  Serious: Yes (Hospitalization)
  Sender: FDA-Public Use
  Company Number: US-ALLERGAN-1112546US

PATIENT
  Age: 54 Year
  Sex: Female

DRUGS (5)
  1. FLAXSEED OIL [Concomitant]
  2. RESTASIS [Suspect]
     Indication: DRY EYE
     Dosage: 2 GTT, BID
     Route: 047
     Dates: start: 20110912, end: 20110920
  3. FERROUS SULFATE TAB [Concomitant]
  4. MULTIPLE VITAMINS [Concomitant]
  5. ASPIRIN [Concomitant]

REACTIONS (4)
  - HOT FLUSH [None]
  - CHEST DISCOMFORT [None]
  - PALPITATIONS [None]
  - DYSPNOEA [None]
